FAERS Safety Report 22649273 (Version 1)
Quarter: 2023Q2

REPORT INFORMATION
  Report Type: Spontaneous
  Country: SE (occurrence: SE)
  Receive Date: 20230628
  Receipt Date: 20230628
  Transmission Date: 20230722
  Serious: Yes (Other)
  Sender: FDA-Public Use
  Company Number: SE-STRIDES ARCOLAB LIMITED-2023SP010116

PATIENT

DRUGS (3)
  1. METHOTREXATE [Suspect]
     Active Substance: METHOTREXATE
     Indication: Acute lymphocytic leukaemia
     Dosage: UNK, RECEIVED NOPHO ALL2008 PROTOCOL; HIGH-DOSE
     Route: 065
  2. VINCRISTINE [Suspect]
     Active Substance: VINCRISTINE
     Indication: Acute lymphocytic leukaemia
     Dosage: UNK, RECEIVED NOPHO ALL2008 PROTOCOL
     Route: 065
  3. ASPARAGINASE [Suspect]
     Active Substance: ASPARAGINASE
     Indication: Acute lymphocytic leukaemia
     Dosage: UNK, RECEIVED NOPHO ALL2008 PROTOCOL
     Route: 065

REACTIONS (2)
  - Haemorrhage intracranial [Unknown]
  - Quadriparesis [Unknown]
